FAERS Safety Report 17619816 (Version 1)
Quarter: 2020Q2

REPORT INFORMATION
  Report Type: Spontaneous
  Country: FR (occurrence: FR)
  Receive Date: 20200403
  Receipt Date: 20200403
  Transmission Date: 20200713
  Serious: Yes (Other)
  Sender: FDA-Public Use
  Company Number: FR-ROCHE-2516308

PATIENT
  Age: 72 Year
  Sex: Female

DRUGS (4)
  1. LUCENTIS [Suspect]
     Active Substance: RANIBIZUMAB
     Dosage: (SECOND INJECTION)
     Route: 065
     Dates: start: 20191031
  2. LUCENTIS [Suspect]
     Active Substance: RANIBIZUMAB
     Dosage: (THIRD INJECTION)
     Route: 065
     Dates: start: 20191203
  3. LUCENTIS [Suspect]
     Active Substance: RANIBIZUMAB
     Indication: AGE-RELATED MACULAR DEGENERATION
     Dosage: (FIRST INJECTION)
     Route: 065
     Dates: start: 20190930
  4. THYROFIX [Concomitant]
     Active Substance: LEVOTHYROXINE SODIUM
     Indication: HYPOTHYROIDISM
     Route: 065
     Dates: start: 2017

REACTIONS (10)
  - Choroidal neovascularisation [Unknown]
  - Headache [Not Recovered/Not Resolved]
  - Macular degeneration [Unknown]
  - Photopsia [Unknown]
  - Bladder discomfort [Unknown]
  - Visual impairment [Recovering/Resolving]
  - Retinal detachment [Unknown]
  - Nausea [Unknown]
  - Eye pain [Not Recovered/Not Resolved]
  - Vitreous detachment [Unknown]

NARRATIVE: CASE EVENT DATE: 20191101
